FAERS Safety Report 14174354 (Version 1)
Quarter: 2017Q4

REPORT INFORMATION
  Report Type: Report from Study
  Country: DE (occurrence: DE)
  Receive Date: 20171109
  Receipt Date: 20171109
  Transmission Date: 20180321
  Serious: Yes (Hospitalization, Other)
  Sender: FDA-Public Use
  Company Number: DE-BRISTOL-MYERS SQUIBB COMPANY-BMS-2017-098703

PATIENT
  Age: 85 Year
  Sex: Male

DRUGS (2)
  1. BLINDED ASPIRIN [Suspect]
     Active Substance: ASPIRIN
     Indication: CEREBROVASCULAR ACCIDENT PROPHYLAXIS
     Route: 065
  2. BLINDED APIXABAN [Suspect]
     Active Substance: APIXABAN
     Indication: CEREBROVASCULAR ACCIDENT PROPHYLAXIS
     Route: 065

REACTIONS (5)
  - Pulmonary oedema [Recovered/Resolved]
  - Pneumonia [Recovered/Resolved with Sequelae]
  - Hypertension [Recovered/Resolved]
  - Blood creatinine increased [Recovered/Resolved]
  - Enterococcal infection [Recovered/Resolved with Sequelae]

NARRATIVE: CASE EVENT DATE: 20171007
